FAERS Safety Report 24739747 (Version 1)
Quarter: 2024Q4

REPORT INFORMATION
  Report Type: Spontaneous
  Country: US (occurrence: US)
  Receive Date: 20241216
  Receipt Date: 20241216
  Transmission Date: 20250115
  Serious: No
  Sender: SANOFI AVENTIS
  Company Number: US-SA-2024SA369702

PATIENT
  Sex: Female
  Weight: 85.91 kg

DRUGS (7)
  1. DUPIXENT [Suspect]
     Active Substance: DUPILUMAB
     Indication: Illness
     Dosage: 300 MG, QOW
     Route: 058
  2. MINOXIDIL [Concomitant]
     Active Substance: MINOXIDIL
  3. VITAMINS [Concomitant]
     Active Substance: VITAMINS
  4. ZEPBOUND [Concomitant]
     Active Substance: TIRZEPATIDE
  5. GABAPENTIN [Concomitant]
     Active Substance: GABAPENTIN
  6. ADDERALL [Concomitant]
     Active Substance: AMPHETAMINE ASPARTATE\AMPHETAMINE SULFATE\DEXTROAMPHETAMINE SACCHARATE\DEXTROAMPHETAMINE SULFATE
  7. WELLBUTRIN SR [Concomitant]
     Active Substance: BUPROPION HYDROCHLORIDE
     Dosage: UNK UNK, Q12H

REACTIONS (1)
  - Nasopharyngitis [Unknown]
